FAERS Safety Report 25826983 (Version 1)
Quarter: 2025Q3

REPORT INFORMATION
  Report Type: Spontaneous
  Country: EU (occurrence: EU)
  Receive Date: 20250920
  Receipt Date: 20250920
  Transmission Date: 20251021
  Serious: Yes (Other)
  Sender: ACCORD
  Company Number: EU-Accord-502971

PATIENT
  Age: 30 Year
  Sex: Male

DRUGS (8)
  1. MYCOPHENOLATE MOFETIL [Suspect]
     Active Substance: MYCOPHENOLATE MOFETIL
     Indication: Nephrotic syndrome
  2. NEORAL [Suspect]
     Active Substance: CYCLOSPORINE
     Indication: Nephrotic syndrome
     Dosage: 160 MG/DAY (80 MGX2), TAPERED AND RAPIDLY STOPPED IN SEVERAL WEEKS.
  3. PREDNISONE [Suspect]
     Active Substance: PREDNISONE
     Indication: Nephrotic syndrome
     Dosage: TAPERED TO 0 MG/DAY
  4. OBINUTUZUMAB [Concomitant]
     Active Substance: OBINUTUZUMAB
     Indication: Nephrotic syndrome
     Dosage: ON DAYS 1 AND 15
  5. PREDNISONE [Suspect]
     Active Substance: PREDNISONE
     Indication: Disease recurrence
     Dosage: TAPERED TO 0 MG/DAY
  6. MYCOPHENOLATE MOFETIL [Suspect]
     Active Substance: MYCOPHENOLATE MOFETIL
     Indication: Disease recurrence
  7. OBINUTUZUMAB [Concomitant]
     Active Substance: OBINUTUZUMAB
     Indication: Glomerulonephritis minimal lesion
     Dosage: ON DAYS 1 AND 15
  8. NEORAL [Suspect]
     Active Substance: CYCLOSPORINE
     Indication: Disease recurrence
     Dosage: 160 MG/DAY (80 MGX2), TAPERED AND RAPIDLY STOPPED IN SEVERAL WEEKS.

REACTIONS (2)
  - COVID-19 [Recovered/Resolved]
  - Peritonitis [Unknown]
